FAERS Safety Report 25417809 (Version 1)
Quarter: 2025Q2

REPORT INFORMATION
  Report Type: Report from Study
  Country: US (occurrence: US)
  Receive Date: 20250610
  Receipt Date: 20250610
  Transmission Date: 20250716
  Serious: Yes (Other)
  Sender: ESTEVE
  Company Number: US-Esteve Pharmaceuticals SA-2178418

PATIENT
  Sex: Female

DRUGS (5)
  1. METOPIRONE [Suspect]
     Active Substance: METYRAPONE
     Dates: start: 20201002
  2. BIOTIN [Concomitant]
     Active Substance: BIOTIN
  3. SPIRIVA HANDIHLR [Concomitant]
  4. VITAMINS [Concomitant]
     Active Substance: VITAMINS
  5. MAGNESIUM [Concomitant]
     Active Substance: MAGNESIUM

REACTIONS (5)
  - Adrenal insufficiency [Not Recovered/Not Resolved]
  - Depression [Not Recovered/Not Resolved]
  - Fatigue [Not Recovered/Not Resolved]
  - Headache [Not Recovered/Not Resolved]
  - Insomnia [Not Recovered/Not Resolved]
